FAERS Safety Report 8847146 (Version 1)
Quarter: 2012Q4

REPORT INFORMATION
  Report Type: Spontaneous
  Country: GB (occurrence: None)
  Receive Date: 20121016
  Receipt Date: 20121016
  Transmission Date: 20130627
  Serious: Yes (Other)
  Sender: FDA-Public Use
  Company Number: GER/UKI/12/0026193

PATIENT
  Age: 31 Year
  Sex: Female
  Weight: 65.77 kg

DRUGS (2)
  1. OMEPRAZOLE (OMEPRAZOLE) [Suspect]
     Indication: HELICOBACTER PYLORI INFECTION
     Dosage: 20 mg, 2 in 1 D, Oral
     Dates: start: 20120302, end: 20120917
  2. OMEPRAZOLE (OMEPRAZOLE) [Suspect]
     Indication: STOMACH ULCER
     Dosage: 20 mg, 2 in 1 D, Oral
     Dates: start: 20120302, end: 20120917

REACTIONS (9)
  - Anxiety [None]
  - Jaundice [None]
  - Hepatic pain [None]
  - Bipolar I disorder [None]
  - Mood swings [None]
  - Stress [None]
  - Oedema peripheral [None]
  - Tearfulness [None]
  - Weight increased [None]
